FAERS Safety Report 10302246 (Version 15)
Quarter: 2016Q1

REPORT INFORMATION
  Report Type: Report from Study
  Country: CA (occurrence: CA)
  Receive Date: 20140714
  Receipt Date: 20160111
  Transmission Date: 20160525
  Serious: Yes (Hospitalization, Disabling, Other)
  Sender: FDA-Public Use
  Company Number: CA-ROCHE-1282549

PATIENT
  Age: 55 Year
  Sex: Female
  Weight: 78.4 kg

DRUGS (8)
  1. TAXOL [Concomitant]
     Active Substance: PACLITAXEL
  2. AVASTIN [Suspect]
     Active Substance: BEVACIZUMAB
     Indication: OVARIAN CANCER
     Route: 042
     Dates: start: 20130619
  3. CARBOPLATIN. [Concomitant]
     Active Substance: CARBOPLATIN
  4. NITROFURANTOIN. [Concomitant]
     Active Substance: NITROFURANTOIN
     Dosage: FOR SEVEN DAYS
     Route: 065
  5. AVASTIN [Suspect]
     Active Substance: BEVACIZUMAB
     Route: 042
     Dates: start: 20150429
  6. RANITIDINE [Concomitant]
     Active Substance: RANITIDINE\RANITIDINE HYDROCHLORIDE
     Dosage: AS NEEDED
     Route: 065
  7. DECADRON (CANADA) [Concomitant]
     Route: 065
  8. MAGNESIUM OXIDE. [Concomitant]
     Active Substance: MAGNESIUM OXIDE
     Route: 048

REACTIONS (13)
  - Abdominal pain upper [Recovering/Resolving]
  - Urinary tract infection [Unknown]
  - Blood creatine increased [Unknown]
  - Blood count abnormal [Unknown]
  - Blood creatinine increased [Unknown]
  - Insomnia [Unknown]
  - Off label use [Unknown]
  - Stress [Unknown]
  - Intestinal obstruction [Unknown]
  - Vomiting [Unknown]
  - Nausea [Recovering/Resolving]
  - Blood potassium decreased [Recovered/Resolved]
  - Kidney infection [Unknown]

NARRATIVE: CASE EVENT DATE: 20130925
